FAERS Safety Report 5151068-9 (Version None)
Quarter: 2006Q4

REPORT INFORMATION
  Report Type: 
  Country: None (occurrence: None)
  Receive Date: 20061115
  Receipt Date: 20060918
  Transmission Date: 20070319
  Serious: Yes (Hospitalization)
  Sender: FDA-Public Use
  Company Number: PHBS2006TR14323

PATIENT
  Age: 65 Year
  Sex: Female

DRUGS (8)
  1. DORMICUM [Concomitant]
     Indication: COLONOSCOPY
     Dosage: 4 MG/DAY
     Route: 042
  2. ZELMAC [Suspect]
     Indication: IRRITABLE BOWEL SYNDROME
     Dosage: 6 MG, BID
     Route: 048
     Dates: start: 20060913, end: 20060915
  3. INSULIN [Concomitant]
     Indication: DIABETES MELLITUS NON-INSULIN-DEPENDENT
  4. DELIX [Concomitant]
     Dosage: 2.5 MG, QD
     Route: 065
  5. BELOC ZOK [Concomitant]
     Dosage: 50 MG, QD
     Route: 048
  6. PRAVACHOL [Concomitant]
     Dosage: 10 MG, QD
  7. METFORMIN HYDROCHLORIDE [Concomitant]
     Dosage: UNK, QD
  8. LANSOR [Concomitant]
     Dosage: 30 MG, BID
     Route: 065

REACTIONS (8)
  - COLITIS ISCHAEMIC [None]
  - DIARRHOEA HAEMORRHAGIC [None]
  - GASTROINTESTINAL EROSION [None]
  - HAEMORRHOIDS [None]
  - LARGE INTESTINAL ULCER [None]
  - OEDEMA MUCOSAL [None]
  - POLYP [None]
  - RECTAL HAEMORRHAGE [None]
